FAERS Safety Report 25041873 (Version 1)
Quarter: 2025Q1

REPORT INFORMATION
  Report Type: Spontaneous
  Country: IT (occurrence: IT)
  Receive Date: 20250305
  Receipt Date: 20250305
  Transmission Date: 20250408
  Serious: Yes (Other)
  Sender: ANI
  Company Number: IT-ANIPHARMA-2025-IT-000016

PATIENT
  Age: 73 Year
  Sex: Male

DRUGS (9)
  1. CANDESARTAN CILEXETIL [Suspect]
     Active Substance: CANDESARTAN CILEXETIL
     Indication: Product used for unknown indication
  2. CARVEDILOL [Concomitant]
     Active Substance: CARVEDILOL
  3. FEBUXOSTAT [Concomitant]
     Active Substance: FEBUXOSTAT
  4. FORMOTEROL FUMARATE DIHYDRATE [Concomitant]
     Active Substance: FORMOTEROL FUMARATE DIHYDRATE
  5. BECLOMETHASONE DIPROPIONATE [Concomitant]
     Active Substance: BECLOMETHASONE DIPROPIONATE
  6. GLYCOPYRRONIUM [Concomitant]
     Active Substance: GLYCOPYRRONIUM
  7. EZETIMIBE [Concomitant]
     Active Substance: EZETIMIBE
  8. BEMPEDOIC ACID [Concomitant]
     Active Substance: BEMPEDOIC ACID
  9. RIVAROXABAN [Concomitant]
     Active Substance: RIVAROXABAN

REACTIONS (2)
  - Syncope [Unknown]
  - Acute kidney injury [Unknown]
